FAERS Safety Report 6816798-9 (Version None)
Quarter: 2010Q3

REPORT INFORMATION
  Report Type: 
  Country: None (occurrence: None)
  Receive Date: 20100706
  Receipt Date: 20100702
  Transmission Date: 20110219
  Serious: Yes (Other)
  Sender: FDA-Public Use
  Company Number: US-JNJFOC-20100510912

PATIENT
  Sex: Female

DRUGS (2)
  1. LEVAQUIN [Suspect]
     Indication: PNEUMONIA
     Route: 042
  2. METHYLPREDNISOLONE [Suspect]
     Indication: PNEUMONIA
     Route: 065

REACTIONS (2)
  - HEADACHE [None]
  - VISUAL IMPAIRMENT [None]
